FAERS Safety Report 12386820 (Version 2)
Quarter: 2016Q3

REPORT INFORMATION
  Report Type: Spontaneous
  Country: US (occurrence: US)
  Receive Date: 20160519
  Receipt Date: 20160708
  Transmission Date: 20161109
  Serious: No
  Sender: FDA-Public Use
  Company Number: US-TEVA-654705USA

PATIENT
  Age: 41 Year
  Sex: Female

DRUGS (1)
  1. ZECUITY [Suspect]
     Active Substance: SUMATRIPTAN SUCCINATE
     Route: 062
     Dates: start: 20160415

REACTIONS (7)
  - Incorrect drug administration duration [Recovered/Resolved]
  - Application site swelling [Recovering/Resolving]
  - Application site discolouration [Recovering/Resolving]
  - Application site warmth [Recovered/Resolved]
  - Device use error [Recovered/Resolved]
  - Application site erythema [Recovering/Resolving]
  - Application site paraesthesia [Recovered/Resolved]

NARRATIVE: CASE EVENT DATE: 20160415
